FAERS Safety Report 26108108 (Version 1)
Quarter: 2025Q4

REPORT INFORMATION
  Report Type: Spontaneous
  Country: GB (occurrence: GB)
  Receive Date: 20251201
  Receipt Date: 20251201
  Transmission Date: 20260118
  Serious: Yes (Other)
  Sender: STEMLINE THERAPEUTICS
  Company Number: GB-STEMLINE THERAPEUTICS B.V.-2025-STML-GB004033

PATIENT

DRUGS (2)
  1. ELACESTRANT [Suspect]
     Active Substance: ELACESTRANT
     Indication: Invasive ductal breast carcinoma
     Dosage: UNK
     Route: 065
     Dates: start: 20251030
  2. ELACESTRANT [Suspect]
     Active Substance: ELACESTRANT
     Indication: Breast cancer metastatic

REACTIONS (3)
  - Optic ischaemic neuropathy [Unknown]
  - Tenderness [Unknown]
  - Headache [Unknown]

NARRATIVE: CASE EVENT DATE: 20251113
